FAERS Safety Report 6349715-9 (Version None)
Quarter: 2009Q3

REPORT INFORMATION
  Report Type: 
  Country: None (occurrence: None)
  Receive Date: 20090911
  Receipt Date: 20090831
  Transmission Date: 20100115
  Serious: Yes (Other)
  Sender: FDA-Public Use
  Company Number: TR-WATSON-2009-07131

PATIENT
  Age: 45 Year
  Sex: Male

DRUGS (2)
  1. PREDNISOLONE (WATSON LABORATORIES) [Suspect]
     Indication: CLUSTER HEADACHE
     Dosage: 80 MG, DAILY
     Dates: start: 20040101, end: 20040101
  2. PREDNISOLONE (WATSON LABORATORIES) [Suspect]
     Dosage: 10 MG, Q3DAYS

REACTIONS (2)
  - BLINDNESS [None]
  - CHORIORETINOPATHY [None]
